FAERS Safety Report 23368701 (Version 1)
Quarter: 2024Q1

REPORT INFORMATION
  Report Type: Spontaneous
  Country: CN (occurrence: None)
  Receive Date: 20240105
  Receipt Date: 20240105
  Transmission Date: 20240409
  Serious: Yes (Other)
  Sender: FDA-Public Use
  Company Number: CN-ROCHE-3485050

PATIENT
  Age: 53 Year
  Sex: Female
  Weight: 65 kg

DRUGS (4)
  1. HERCEPTIN [Suspect]
     Active Substance: TRASTUZUMAB
     Indication: Gallbladder cancer
     Route: 041
     Dates: start: 202309
  2. SODIUM CHLORIDE [Concomitant]
     Active Substance: SODIUM CHLORIDE
     Route: 041
     Dates: start: 202309
  3. DURVALUMAB [Concomitant]
     Active Substance: DURVALUMAB
     Indication: Gallbladder cancer
     Dosage: D1
     Route: 065
     Dates: start: 202309
  4. PYROTINIB [Concomitant]
     Active Substance: PYROTINIB
     Indication: Gallbladder cancer
     Dates: start: 202309

REACTIONS (1)
  - Drug-induced liver injury [Recovering/Resolving]

NARRATIVE: CASE EVENT DATE: 20231221
